FAERS Safety Report 15469471 (Version 1)
Quarter: 2018Q4

REPORT INFORMATION
  Report Type: Spontaneous
  Country: IT (occurrence: IT)
  Receive Date: 20181005
  Receipt Date: 20181005
  Transmission Date: 20190205
  Serious: Yes (Other)
  Sender: FDA-Public Use
  Company Number: IT-UCBSA-2018030399

PATIENT
  Age: 7 Year
  Sex: Male
  Weight: 34 kg

DRUGS (2)
  1. DEPAKIN [Suspect]
     Active Substance: VALPROATE SODIUM
     Indication: EPILEPSY
     Dosage: 1 G, 1 DAY
     Route: 048
     Dates: start: 20180101, end: 20180620
  2. VIMPAT [Suspect]
     Active Substance: LACOSAMIDE
     Indication: EPILEPSY
     Dosage: 125 MG, 1 DAY
     Route: 048
     Dates: start: 20180101, end: 20180620

REACTIONS (2)
  - Epilepsy [Recovering/Resolving]
  - Drug ineffective [Unknown]

NARRATIVE: CASE EVENT DATE: 20180620
